FAERS Safety Report 6211285-3 (Version None)
Quarter: 2009Q2

REPORT INFORMATION
  Report Type: 
  Country: None (occurrence: None)
  Receive Date: 20090602
  Receipt Date: 20090526
  Transmission Date: 20091009
  Serious: Yes (Other)
  Sender: FDA-Public Use
  Company Number: US-JNJCH-2009014607

PATIENT
  Age: 12 Year
  Sex: Female

DRUGS (1)
  1. PURELL WITH ALOE [Suspect]
     Indication: ANTIBIOTIC PROPHYLAXIS
     Dosage: TEXT:UNSPECIFIED
     Route: 047

REACTIONS (5)
  - ACCIDENTAL EXPOSURE [None]
  - EYE IRRITATION [None]
  - SUPERFICIAL INJURY OF EYE [None]
  - VISION BLURRED [None]
  - VISUAL IMPAIRMENT [None]
